FAERS Safety Report 9612528 (Version 3)
Quarter: 2014Q1

REPORT INFORMATION
  Report Type: Report from Study
  Country: US (occurrence: US)
  Receive Date: 20131010
  Receipt Date: 20140217
  Transmission Date: 20141002
  Serious: Yes (Other)
  Sender: FDA-Public Use
  Company Number: US-ELI_LILLY_AND_COMPANY-US201310001306

PATIENT
  Sex: Female

DRUGS (6)
  1. DULOXETINE HYDROCHLORIDE [Suspect]
     Indication: NEUROPATHY PERIPHERAL
     Dosage: 60 MG, BID
     Dates: start: 2003, end: 201306
  2. DULOXETINE HYDROCHLORIDE [Suspect]
     Indication: SJOGREN^S SYNDROME
  3. NEURONTIN [Concomitant]
  4. LOSARTAN [Concomitant]
  5. METFORMIN [Concomitant]
  6. SYNTHROID [Concomitant]

REACTIONS (8)
  - Suicidal ideation [Recovered/Resolved]
  - Intentional drug misuse [Recovered/Resolved]
  - Activities of daily living impaired [Recovered/Resolved]
  - Aphagia [Recovered/Resolved]
  - Type 2 diabetes mellitus [Unknown]
  - Neuralgia [Recovered/Resolved]
  - Insomnia [Recovered/Resolved]
  - Drug withdrawal syndrome [Recovered/Resolved]
